FAERS Safety Report 7803602-5 (Version None)
Quarter: 2011Q4

REPORT INFORMATION
  Report Type: 
  Country: None (occurrence: None)
  Receive Date: 20111009
  Receipt Date: 20111005
  Transmission Date: 20120403
  Serious: Yes (Other)
  Sender: FDA-Public Use
  Company Number: DE-BRISTOL-MYERS SQUIBB COMPANY-16113037

PATIENT
  Age: 52 Year
  Sex: Male
  Weight: 81 kg

DRUGS (4)
  1. AGOMELATINE [Concomitant]
  2. ABILIFY [Suspect]
     Indication: SCHIZOAFFECTIVE DISORDER
     Route: 048
     Dates: start: 20110914
  3. THIAMINE HCL [Concomitant]
  4. MAGNESIUM [Concomitant]

REACTIONS (4)
  - TENSION [None]
  - VISUAL IMPAIRMENT [None]
  - SWOLLEN TONGUE [None]
  - SWELLING FACE [None]
